FAERS Safety Report 7378022-0 (Version None)
Quarter: 2011Q1

REPORT INFORMATION
  Report Type: 
  Country: None (occurrence: None)
  Receive Date: 20110316
  Receipt Date: 20110309
  Transmission Date: 20110831
  Serious: Yes (Other)
  Sender: FDA-Public Use
  Company Number: 201110235

PATIENT
  Sex: Female

DRUGS (1)
  1. LIORESAL [Suspect]
     Indication: MUSCLE SPASTICITY
     Dosage: 150 MCG, DAILY, INTRATHECAL
     Route: 037

REACTIONS (4)
  - IMPLANT SITE EFFUSION [None]
  - PSEUDOMENINGOCELE [None]
  - THERAPEUTIC RESPONSE DECREASED [None]
  - CATHETER SITE RELATED REACTION [None]
